FAERS Safety Report 22610098 (Version 1)
Quarter: 2023Q2

REPORT INFORMATION
  Report Type: Spontaneous
  Country: US (occurrence: US)
  Receive Date: 20230616
  Receipt Date: 20230616
  Transmission Date: 20230722
  Serious: No
  Sender: FDA-Public Use
  Company Number: US-Blueprint Medicines Corporation-SP-US-2023-000979

PATIENT
  Sex: Male

DRUGS (4)
  1. AYVAKIT [Suspect]
     Active Substance: AVAPRITINIB
     Indication: Systemic mastocytosis
     Dosage: 25MG DAILY ALTERNATING WITH 50MG EVERY OTHER DAY
     Route: 065
     Dates: start: 20210820
  2. AYVAKIT [Suspect]
     Active Substance: AVAPRITINIB
     Dosage: 25MG DAILY ALTERNATING WITH 50MG EVERY OTHER DAY
     Route: 065
     Dates: start: 20210820
  3. COREG [Suspect]
     Active Substance: CARVEDILOL
     Indication: Product used for unknown indication
     Route: 065
  4. ENTRESTO [Concomitant]
     Active Substance: SACUBITRIL\VALSARTAN
     Indication: Product used for unknown indication
     Route: 065

REACTIONS (1)
  - Pulse abnormal [Unknown]
